FAERS Safety Report 13737662 (Version 1)
Quarter: 2017Q3

REPORT INFORMATION
  Report Type: Report from Study
  Country: US (occurrence: US)
  Receive Date: 20170710
  Receipt Date: 20170710
  Transmission Date: 20171127
  Serious: No
  Sender: FDA-Public Use
  Company Number: US-SAOL THERAPEUTICS-2016SAO00419

PATIENT
  Age: 56 Year
  Sex: Female

DRUGS (8)
  1. BACLOFEN. [Suspect]
     Active Substance: BACLOFEN
     Indication: PAIN
     Dosage: 75.1 ?G, \DAY
     Route: 037
     Dates: start: 20160320
  2. BUPIVACAINE. [Suspect]
     Active Substance: BUPIVACAINE
     Dosage: 4.506 MG, \DAY
     Route: 037
     Dates: start: 20160320
  3. BUPIVACAINE. [Suspect]
     Active Substance: BUPIVACAINE
     Dosage: 5.995 MG, \DAY
     Route: 037
     Dates: start: 20160204, end: 20160320
  4. DILAUDID [Suspect]
     Active Substance: HYDROMORPHONE HYDROCHLORIDE
     Dosage: 1.9983 MG, \DAY
     Route: 037
     Dates: start: 20160204, end: 20160320
  5. BACLOFEN. [Suspect]
     Active Substance: BACLOFEN
     Indication: BONE PAIN
     Dosage: 99.92 ?G, \DAY
     Route: 037
     Dates: start: 20160204, end: 20160320
  6. DILAUDID [Suspect]
     Active Substance: HYDROMORPHONE HYDROCHLORIDE
     Dosage: 1.502 MG, \DAY
     Route: 037
     Dates: start: 20160320
  7. CLONIDINE. [Suspect]
     Active Substance: CLONIDINE
     Dosage: 99.92 ?G, \DAY
     Route: 037
     Dates: start: 20160204, end: 20160320
  8. CLONIDINE. [Suspect]
     Active Substance: CLONIDINE
     Dosage: 75.1 ?G, \DAY
     Route: 037
     Dates: start: 20160320

REACTIONS (5)
  - Hypoaesthesia [Recovered/Resolved]
  - Off label use [Recovered/Resolved]
  - Gait disturbance [Recovered/Resolved]
  - Muscular weakness [Recovered/Resolved]
  - Fall [Recovered/Resolved]

NARRATIVE: CASE EVENT DATE: 20160204
